FAERS Safety Report 5155113-6 (Version None)
Quarter: 2006Q4

REPORT INFORMATION
  Report Type: 
  Country: None (occurrence: None)
  Receive Date: 20061120
  Receipt Date: 20061120
  Transmission Date: 20070319
  Serious: No
  Sender: FDA-Public Use
  Company Number: None

PATIENT
  Age: 45 Year
  Sex: Male
  Weight: 158.759 kg

DRUGS (2)
  1. MALARONE [Suspect]
     Indication: MALARIA PROPHYLAXIS
     Dosage: 250MG   1XDAY  PO
     Route: 048
     Dates: start: 20060615, end: 20060831
  2. MALARONE [Suspect]
     Indication: MALARIA PROPHYLAXIS
     Dosage: 250MG   1XDAY  PO
     Route: 048
     Dates: start: 20060929, end: 20061119

REACTIONS (3)
  - HEADACHE [None]
  - VISUAL ACUITY REDUCED [None]
  - VITREOUS FLOATERS [None]
